FAERS Safety Report 23295796 (Version 1)
Quarter: 2023Q4

REPORT INFORMATION
  Report Type: Spontaneous
  Country: US (occurrence: US)
  Receive Date: 20231214
  Receipt Date: 20231214
  Transmission Date: 20240110
  Serious: No
  Sender: FDA-Public Use
  Company Number: US-SANDOZ-NVSC2023US087773

PATIENT
  Sex: Male
  Weight: 90.72 kg

DRUGS (7)
  1. AMLODIPINE [Suspect]
     Active Substance: AMLODIPINE BESYLATE
     Indication: Psoriasis
     Dosage: UNK
     Route: 065
  2. CLOBETASOL [Suspect]
     Active Substance: CLOBETASOL
     Indication: Product used for unknown indication
     Dosage: UNK
     Route: 065
  3. COSENTYX [Suspect]
     Active Substance: SECUKINUMAB
     Indication: Product used for unknown indication
     Dosage: UNK
     Route: 065
  4. MOMETASONE FUROATE [Suspect]
     Active Substance: MOMETASONE FUROATE
     Indication: Psoriasis
     Dosage: UNK
     Route: 065
  5. TELMISARTAN [Suspect]
     Active Substance: TELMISARTAN
     Indication: Psoriasis
     Dosage: UNK
     Route: 065
  6. LIPITOR [Concomitant]
     Active Substance: ATORVASTATIN CALCIUM
     Indication: Product used for unknown indication
     Dosage: UNK
     Route: 065
  7. VIAGRA [Concomitant]
     Active Substance: SILDENAFIL CITRATE
     Indication: Product used for unknown indication
     Dosage: UNK
     Route: 065

REACTIONS (22)
  - Lentigo [Unknown]
  - Basophil count increased [Unknown]
  - Lymphocyte count decreased [Unknown]
  - Red cell distribution width decreased [Unknown]
  - Xerosis [Unknown]
  - Skin fibrosis [Unknown]
  - Neurodermatitis [Unknown]
  - Psoriasis [Unknown]
  - Skin lesion [Unknown]
  - Skin fissures [Unknown]
  - Scratch [Unknown]
  - Scar [Unknown]
  - Papule [Unknown]
  - Pruritus [Unknown]
  - Product use in unapproved indication [Unknown]
  - Swelling [Unknown]
  - Pain [Unknown]
  - Skin exfoliation [Unknown]
  - Dry skin [Unknown]
  - Rash [Unknown]
  - Erythema [Unknown]
  - Drug ineffective for unapproved indication [Unknown]
